FAERS Safety Report 19414776 (Version 4)
Quarter: 2021Q4

REPORT INFORMATION
  Report Type: Report from Study
  Country: BR (occurrence: None)
  Receive Date: 20210615
  Receipt Date: 20211213
  Transmission Date: 20220303
  Serious: Yes (Death, Hospitalization)
  Sender: FDA-Public Use
  Company Number: BR-ROCHE-2845027

PATIENT
  Age: 45 Year
  Sex: Female
  Weight: 58 kg

DRUGS (42)
  1. OCRELIZUMAB [Suspect]
     Active Substance: OCRELIZUMAB
     Indication: Progressive multiple sclerosis
     Dosage: DATE OF MOST RECENT DOSE OF OCRELIZUMAB PRIOR TO THIS SAE ONSET: 11/FEB/2021 (600 MG)?OCRELIZUMAB WI
     Route: 042
     Dates: start: 20190328
  2. BACLOFEN [Concomitant]
     Active Substance: BACLOFEN
     Route: 048
     Dates: start: 2018, end: 201905
  3. LISDEXAMFETAMINE DIMESYLATE [Concomitant]
     Active Substance: LISDEXAMFETAMINE DIMESYLATE
     Indication: Fatigue
     Route: 048
     Dates: start: 201810
  4. METHYLPREDNISOLONE [Concomitant]
     Active Substance: METHYLPREDNISOLONE
     Indication: Premedication
     Route: 042
     Dates: start: 20190131, end: 20190204
  5. METHYLPREDNISOLONE [Concomitant]
     Active Substance: METHYLPREDNISOLONE
     Dosage: ONCE BEFORE OCRELIZUMAB INFUSION
     Route: 042
     Dates: start: 20190328, end: 20190328
  6. METHYLPREDNISOLONE [Concomitant]
     Active Substance: METHYLPREDNISOLONE
     Dosage: ONCE BEFORE OCRELIZUMAB INFUSION
     Route: 042
     Dates: start: 20190411, end: 20190411
  7. METHYLPREDNISOLONE [Concomitant]
     Active Substance: METHYLPREDNISOLONE
     Dosage: ONCE BEFORE OCRELIZUMAB INFUSION
     Route: 042
     Dates: start: 20190926, end: 20190926
  8. METHYLPREDNISOLONE [Concomitant]
     Active Substance: METHYLPREDNISOLONE
     Dosage: ONCE BEFORE OCRELIZUMAB INFUSION
     Route: 042
     Dates: start: 20200312, end: 20200312
  9. METHYLPREDNISOLONE [Concomitant]
     Active Substance: METHYLPREDNISOLONE
     Dosage: ONCE BEFORE OCRELIZUMAB INFUSION
     Route: 042
     Dates: start: 20200827, end: 20200827
  10. METHYLPREDNISOLONE [Concomitant]
     Active Substance: METHYLPREDNISOLONE
     Dosage: ONCE BEFORE OCRELIZUMAB INFUSION
     Route: 042
     Dates: start: 20210211, end: 20210211
  11. METAMIZOLE SODIUM [Concomitant]
     Active Substance: METAMIZOLE SODIUM
     Indication: Premedication
     Dosage: 1 G/2 ML?ONCE BEFORE OCRELIZUMAB INFUSION
     Route: 042
     Dates: start: 20190328, end: 20190328
  12. METAMIZOLE SODIUM [Concomitant]
     Active Substance: METAMIZOLE SODIUM
     Dosage: 1 G/2 ML?ONCE BEFORE OCRELIZUMAB INFUSION
     Route: 042
     Dates: start: 20190411, end: 20190411
  13. METAMIZOLE SODIUM [Concomitant]
     Active Substance: METAMIZOLE SODIUM
     Dosage: 1 G/2 ML?ONCE BEFORE OCRELIZUMAB INFUSION
     Route: 042
     Dates: start: 20200312, end: 20200312
  14. METAMIZOLE SODIUM [Concomitant]
     Active Substance: METAMIZOLE SODIUM
     Dosage: 1 G/2 ML?ONCE BEFORE OCRELIZUMAB INFUSION
     Route: 042
     Dates: start: 20200827, end: 20200827
  15. METAMIZOLE SODIUM [Concomitant]
     Active Substance: METAMIZOLE SODIUM
     Dosage: 1 G/2 ML?ONCE BEFORE OCRELIZUMAB INFUSION
     Route: 042
     Dates: start: 20210211, end: 20210211
  16. METAMIZOLE SODIUM [Concomitant]
     Active Substance: METAMIZOLE SODIUM
     Route: 048
     Dates: start: 20210525, end: 20210526
  17. METAMIZOLE SODIUM [Concomitant]
     Active Substance: METAMIZOLE SODIUM
     Dosage: 1 G/2ML
     Route: 042
     Dates: start: 20210603, end: 20210613
  18. ACETAMINOPHEN [Concomitant]
     Active Substance: ACETAMINOPHEN
     Indication: Premedication
     Dosage: ONCE BEFORE OCRELIZUMAB INFUSION
     Route: 048
     Dates: start: 20190926, end: 20190926
  19. ACETAMINOPHEN [Concomitant]
     Active Substance: ACETAMINOPHEN
     Route: 048
     Dates: start: 20210605, end: 20210606
  20. ALLEGRA [Concomitant]
     Active Substance: FEXOFENADINE HYDROCHLORIDE
     Route: 048
     Dates: start: 20190328, end: 20190328
  21. ALLEGRA [Concomitant]
     Active Substance: FEXOFENADINE HYDROCHLORIDE
     Route: 048
     Dates: start: 20190411, end: 20190411
  22. FEXOFENADINE [Concomitant]
     Active Substance: FEXOFENADINE HYDROCHLORIDE
     Route: 048
     Dates: start: 20190926, end: 20190926
  23. FEXOFENADINE [Concomitant]
     Active Substance: FEXOFENADINE HYDROCHLORIDE
     Route: 048
     Dates: start: 20200312, end: 20200312
  24. FEXOFENADINE [Concomitant]
     Active Substance: FEXOFENADINE HYDROCHLORIDE
     Route: 048
     Dates: start: 20200827, end: 20200827
  25. FEXOFENADINE [Concomitant]
     Active Substance: FEXOFENADINE HYDROCHLORIDE
     Route: 048
     Dates: start: 20210211, end: 20210211
  26. ESTROGEL [Concomitant]
     Active Substance: ESTRADIOL
     Dates: start: 20210201
  27. DECADRON [Concomitant]
     Active Substance: DEXAMETHASONE
     Dosage: 3 AMPULE
     Route: 042
     Dates: start: 20210604, end: 20210606
  28. ENOXAPARIN SODIUM [Concomitant]
     Active Substance: ENOXAPARIN SODIUM
     Dosage: 1 AMPULE
     Route: 058
     Dates: start: 20210604, end: 20210611
  29. ENOXAPARIN SODIUM [Concomitant]
     Active Substance: ENOXAPARIN SODIUM
     Dosage: 1 AMPULE
     Route: 058
     Dates: start: 20210611, end: 20210613
  30. PANTOZOL [Concomitant]
     Active Substance: PANTOPRAZOLE SODIUM
     Route: 048
     Dates: start: 20210605, end: 20210613
  31. KETOPROFEN [Concomitant]
     Active Substance: KETOPROFEN
     Route: 042
     Dates: start: 20210605, end: 20210605
  32. CEFTRIAXONE SODIUM [Concomitant]
     Active Substance: CEFTRIAXONE SODIUM
     Route: 042
     Dates: start: 20210605, end: 20210605
  33. CEFTRIAXONE SODIUM [Concomitant]
     Active Substance: CEFTRIAXONE SODIUM
     Route: 042
     Dates: start: 20210606, end: 20210611
  34. SOLU-MEDROL [Concomitant]
     Active Substance: METHYLPREDNISOLONE SODIUM SUCCINATE
     Dosage: 0.5 AMPULE
     Route: 042
     Dates: start: 20210607, end: 20210607
  35. SOLU-MEDROL [Concomitant]
     Active Substance: METHYLPREDNISOLONE SODIUM SUCCINATE
     Route: 042
     Dates: start: 20210608, end: 20210611
  36. FLEET ENEMA [Concomitant]
     Active Substance: SODIUM PHOSPHATE, DIBASIC\SODIUM PHOSPHATE, MONOBASIC
     Route: 054
     Dates: start: 20210608, end: 20210608
  37. LACTULOSE [Concomitant]
     Active Substance: LACTULOSE
     Dosage: 667MG/120ML
     Route: 048
     Dates: start: 20210608, end: 20210609
  38. HYPONOR [Concomitant]
     Dosage: 4 AMPULE
     Route: 042
     Dates: start: 20210612, end: 20210612
  39. MIDAZOLAM MALEATE [Concomitant]
     Active Substance: MIDAZOLAM MALEATE
     Dosage: 3 AMPULE
     Route: 042
     Dates: start: 20210612, end: 20210612
  40. NIMBIUM [Concomitant]
     Dosage: 5 AMPULE
     Route: 042
     Dates: start: 20210612, end: 20210612
  41. FENTANYL [Concomitant]
     Active Substance: FENTANYL
     Route: 042
     Dates: start: 20210612, end: 20210612
  42. PIPERACILLIN SODIUM\TAZOBACTAM SODIUM [Concomitant]
     Active Substance: PIPERACILLIN SODIUM\TAZOBACTAM SODIUM
     Route: 042
     Dates: start: 20210613, end: 20210613

REACTIONS (1)
  - COVID-19 pneumonia [Fatal]

NARRATIVE: CASE EVENT DATE: 20210523
